FAERS Safety Report 5477655-6 (Version None)
Quarter: 2007Q4

REPORT INFORMATION
  Report Type: 
  Country: None (occurrence: None)
  Receive Date: 20071002
  Receipt Date: 20070911
  Transmission Date: 20080405
  Serious: Yes (Hospitalization)
  Sender: FDA-Public Use
  Company Number: ENT 2007-0128

PATIENT
  Age: 72 Year
  Sex: Male

DRUGS (4)
  1. COMTAN [Suspect]
     Indication: PARKINSON'S DISEASE
     Dosage: 300 MG
     Route: 048
     Dates: start: 20070628, end: 20070703
  2. NEO DOPASTON [Concomitant]
  3. CABERGOLINE [Concomitant]
  4. WARFARIN SODIUM [Concomitant]

REACTIONS (2)
  - PNEUMONIA ASPIRATION [None]
  - SOMNOLENCE [None]
